FAERS Safety Report 8567584-3 (Version None)
Quarter: 2012Q3

REPORT INFORMATION
  Report Type: 
  Country: None (occurrence: None)
  Receive Date: 20120803
  Receipt Date: 20110918
  Transmission Date: 20120928
  Serious: No
  Sender: FDA-Public Use
  Company Number: US-ABBOTT-11P-163-0856435-00

PATIENT
  Sex: Male
  Weight: 85.806 kg

DRUGS (2)
  1. NIASPAN [Suspect]
     Indication: HIGH DENSITY LIPOPROTEIN DECREASED
     Dates: start: 20090101, end: 20100101
  2. NIASPAN [Suspect]
     Dates: start: 20100101

REACTIONS (1)
  - RASH [None]
